FAERS Safety Report 14298734 (Version 1)
Quarter: 2017Q4

REPORT INFORMATION
  Report Type: Spontaneous
  Country: US (occurrence: US)
  Receive Date: 20171218
  Receipt Date: 20171218
  Transmission Date: 20180321
  Serious: Yes (Death)
  Sender: FDA-Public Use
  Company Number: US-TESARO, INC-US-2017TSO04484

PATIENT

DRUGS (1)
  1. ZEJULA [Suspect]
     Active Substance: NIRAPARIB
     Indication: OVARIAN CANCER
     Dosage: 200 MG, QD
     Route: 065
     Dates: start: 20170504

REACTIONS (3)
  - Death [Fatal]
  - Intentional underdose [Recovered/Resolved]
  - Hospice care [Recovered/Resolved]

NARRATIVE: CASE EVENT DATE: 201705
